FAERS Safety Report 10465598 (Version 2)
Quarter: 2014Q4

REPORT INFORMATION
  Report Type: Spontaneous
  Country: GB (occurrence: GB)
  Receive Date: 20140920
  Receipt Date: 20141009
  Transmission Date: 20150528
  Serious: Yes (Congenital Anomaly, Other)
  Sender: FDA-Public Use
  Company Number: GB-AUROBINDO-AUR-APL-2014-09820

PATIENT
  Weight: 1.4 kg

DRUGS (1)
  1. TOPIRAMATE. [Suspect]
     Active Substance: TOPIRAMATE
     Indication: MIGRAINE
     Dosage: 75 MG, TWO TIMES A DAY
     Route: 065
     Dates: start: 2012

REACTIONS (3)
  - Foetal growth restriction [Recovering/Resolving]
  - Small for dates baby [Unknown]
  - Foetal exposure during pregnancy [Unknown]
